FAERS Safety Report 7952007-5 (Version None)
Quarter: 2011Q4

REPORT INFORMATION
  Report Type: 
  Country: None (occurrence: None)
  Receive Date: 20111201
  Receipt Date: 20111124
  Transmission Date: 20120403
  Serious: Yes (Disabling)
  Sender: FDA-Public Use
  Company Number: GB-TEVA-310573ISR

PATIENT
  Age: 15 Year
  Sex: Female

DRUGS (2)
  1. LAMOTRIGINE [Suspect]
     Indication: EPILEPSY
     Route: 048
  2. ETHOSUXIMIDE [Suspect]
     Indication: EPILEPSY
     Route: 048

REACTIONS (1)
  - AMNESIA [None]
